FAERS Safety Report 8191371-1 (Version None)
Quarter: 2012Q1

REPORT INFORMATION
  Report Type: 
  Country: None (occurrence: None)
  Receive Date: 20120221
  Receipt Date: 20111117
  Transmission Date: 20120608
  Serious: No
  Sender: FDA-Public Use
  Company Number: 045897

PATIENT
  Weight: 47.6 kg

DRUGS (4)
  1. LACOSAMIDE [Suspect]
     Indication: CONVULSION
     Dosage: 350 MG, 1.5 TABLETS IN AM 2 TABLETS IN PM ORAL; ORAL
     Route: 048
     Dates: start: 20100301
  2. LACOSAMIDE [Suspect]
     Indication: CONVULSION
     Dosage: 350 MG, 1.5 TABLETS IN AM 2 TABLETS IN PM ORAL; ORAL
     Route: 048
     Dates: start: 20111117
  3. LEVETIRACETAM [Concomitant]
  4. FOLIC ACID [Concomitant]

REACTIONS (1)
  - PREGNANCY [None]
